FAERS Safety Report 8131417-X (Version None)
Quarter: 2012Q1

REPORT INFORMATION
  Report Type: 
  Country: None (occurrence: None)
  Receive Date: 20120207
  Receipt Date: 20120125
  Transmission Date: 20120608
  Serious: Yes (Hospitalization, Other)
  Sender: FDA-Public Use
  Company Number: IMP_05725_2012

PATIENT
  Age: 48 Year
  Sex: Male

DRUGS (6)
  1. ALCOHOL [Suspect]
     Indication: PRODUCT USED FOR UNKNOWN INDICATION
     Dosage: (DF)
  2. COCAINE [Suspect]
     Indication: PRODUCT USED FOR UNKNOWN INDICATION
     Dosage: (DF)
  3. NEBIVOLOL [Suspect]
     Indication: PRODUCT USED FOR UNKNOWN INDICATION
     Dosage: (DF)
  4. DIAZEPAM 75 MG [Suspect]
     Indication: PRODUCT USED FOR UNKNOWN INDICATION
     Dosage: (DF)
  5. BENZODIAZEPINE RELATED DRUGS [Suspect]
     Indication: PRODUCT USED FOR UNKNOWN INDICATION
     Dosage: (DF)
  6. BACLOFEN [Suspect]
     Indication: PRODUCT USED FOR UNKNOWN INDICATION
     Dosage: (DF)

REACTIONS (9)
  - ELECTROCARDIOGRAM QT PROLONGED [None]
  - SUICIDE ATTEMPT [None]
  - CIRCULATORY COLLAPSE [None]
  - CARDIAC ARREST [None]
  - UNRESPONSIVE TO STIMULI [None]
  - BRADYCARDIA [None]
  - HYPOTENSION [None]
  - PUPILLARY REFLEX IMPAIRED [None]
  - INTENTIONAL OVERDOSE [None]
